FAERS Safety Report 8330272 (Version 2)
Quarter: 2013Q2

REPORT INFORMATION
  Report Type: Spontaneous
  Country: US (occurrence: None)
  Receive Date: 20120104
  Receipt Date: 20130416
  Transmission Date: 20140414
  Serious: Yes (Death)
  Sender: FDA-Public Use
  Company Number: 2010001526

PATIENT
  Sex: Female

DRUGS (14)
  1. MIRALAX /00754501/ (MACROGOL) [Concomitant]
  2. COLACE [Concomitant]
  3. TARCEVA [Suspect]
     Indication: LUNG CARCINOMA CELL TYPE UNSPECIFIED STAGE 0
     Dosage: 150 MG, UID/QD, ORAL
     Route: 048
     Dates: start: 20100409, end: 20100412
  4. ALPRAZOLAM (ALPRAZOLAM) [Concomitant]
  5. CITALOPRAM (CITALOPRAM) [Concomitant]
  6. DILTIAZEM [Concomitant]
  7. NEXIUM /01479302/ (ESOMEPRAZOLE MAGNESIUM) [Concomitant]
  8. FERROUS SULFATE (FERROUS SULFATE) [Concomitant]
  9. FUROSEMIDE (FUROSEMIDE) [Concomitant]
  10. ROXANOL (MORPHINE SULFATE) [Concomitant]
  11. MORPHINE [Concomitant]
  12. PREDNISONE (PREDNISONE) [Concomitant]
  13. PROGRAF (TACROLIMUS) [Concomitant]
  14. SINGULAIR [Concomitant]

REACTIONS (4)
  - Nausea [None]
  - Vomiting [None]
  - Diarrhoea [None]
  - Pneumonia staphylococcal [None]
